FAERS Safety Report 7967708-2 (Version None)
Quarter: 2011Q4

REPORT INFORMATION
  Report Type: 
  Country: None (occurrence: None)
  Receive Date: 20111209
  Receipt Date: 20111207
  Transmission Date: 20120403
  Serious: Yes (Death, Hospitalization, Other)
  Sender: FDA-Public Use
  Company Number: JP-B.I. PHARMACEUTICALS,INC./RIDGEFIELD-2011-BP-26092NB

PATIENT
  Sex: Male
  Weight: 50 kg

DRUGS (9)
  1. VERAPAMIL HCL [Suspect]
     Indication: ARRHYTHMIA
     Dosage: 120 MG
     Route: 048
     Dates: start: 20111105, end: 20111106
  2. ALDACTONE [Concomitant]
     Dosage: 25 MG
     Route: 048
  3. CANDESARTAN CILEXETIL [Concomitant]
     Dosage: 4 MG
     Route: 048
  4. BANAN [Concomitant]
     Dosage: 200 MG
     Route: 048
     Dates: start: 20111104, end: 20111104
  5. AMIODARONE HCL [Suspect]
     Dosage: 100 MG
     Route: 048
     Dates: start: 20111028, end: 20111105
  6. MUCOSTA [Concomitant]
     Dosage: 200 MG
     Route: 048
  7. SERMION [Concomitant]
     Dosage: 10 MG
     Route: 048
  8. LASIX [Concomitant]
     Dosage: 40 MG
     Route: 048
  9. PRADAXA [Suspect]
     Indication: ATRIAL FIBRILLATION
     Dosage: 220 MG
     Route: 048
     Dates: start: 20110906, end: 20111105

REACTIONS (4)
  - PNEUMONIA [None]
  - PULMONARY ALVEOLAR HAEMORRHAGE [None]
  - DRUG INTERACTION [None]
  - EMBOLISM [None]
